FAERS Safety Report 4603598-3 (Version None)
Quarter: 2005Q1

REPORT INFORMATION
  Report Type: 
  Country: None (occurrence: None)
  Receive Date: 20050308
  Receipt Date: 20050301
  Transmission Date: 20050727
  Serious: Yes (Other)
  Sender: FDA-Public Use
  Company Number: 144-20785-05030073

PATIENT

DRUGS (1)
  1. THALIDOMIDE         (THALIDOMIDE) [Suspect]
     Indication: MULTIPLE MYELOMA
     Dosage: 200MG INCREASED BY 100 TO 200MG EVERY 2 WKS UP TO MAXIMUM 800MG PER DAY AS TOLERATED, AT BEDTIME, OR
     Route: 048
     Dates: start: 19991101

REACTIONS (2)
  - ATRIOVENTRICULAR BLOCK SECOND DEGREE [None]
  - SYNCOPE [None]
